FAERS Safety Report 8853226 (Version 2)
Quarter: 2012Q4

REPORT INFORMATION
  Report Type: 
  Country: US (occurrence: US)
  Receive Date: 20121023
  Receipt Date: 20121214
  Transmission Date: 20130627
  Serious: No
  Sender: FDA-Public Use
  Company Number: US-009507513-1210USA006682

PATIENT
  Age: 65 Year
  Sex: Female

DRUGS (5)
  1. DULERA [Suspect]
     Indication: ASTHMA
     Dosage: 200/5mcg, bid
     Route: 055
     Dates: start: 20120913, end: 20120926
  2. DULERA [Suspect]
     Dosage: 100/5 mcg, bid
     Route: 055
     Dates: start: 20120927
  3. ZOCOR [Concomitant]
  4. TOPROL XL TABLETS [Concomitant]
  5. PROTONIX [Concomitant]

REACTIONS (1)
  - Epistaxis [Not Recovered/Not Resolved]
